FAERS Safety Report 8167962-0 (Version None)
Quarter: 2012Q1

REPORT INFORMATION
  Report Type: 
  Country: None (occurrence: None)
  Receive Date: 20120227
  Receipt Date: 20120221
  Transmission Date: 20120608
  Serious: Yes (Hospitalization)
  Sender: FDA-Public Use
  Company Number: US-VIIV HEALTHCARE LIMITED-B0760108A

PATIENT
  Age: 47 Year
  Sex: Female
  Weight: 92.7 kg

DRUGS (12)
  1. SUSTIVA [Concomitant]
     Indication: HIV INFECTION
     Dosage: 600MG AT NIGHT
     Dates: start: 20081030
  2. DARUNAVIR ETHANOLATE [Concomitant]
     Indication: HIV INFECTION
     Dosage: 800MG PER DAY
     Dates: start: 20100525
  3. NIACIN [Concomitant]
     Route: 048
     Dates: start: 20100126
  4. LIPITOR [Concomitant]
     Route: 048
     Dates: start: 20110802
  5. MARAVIROC [Suspect]
     Indication: HIV INFECTION
     Dosage: 150MG TWICE PER DAY
     Route: 048
     Dates: start: 20081216
  6. TRICOR [Concomitant]
     Indication: HYPERCHOLESTEROLAEMIA
     Route: 048
     Dates: start: 20101123
  7. PROAIR HFA [Concomitant]
     Indication: CHRONIC OBSTRUCTIVE PULMONARY DISEASE
     Route: 055
     Dates: start: 20101123
  8. RITONAVIR [Concomitant]
     Indication: HIV INFECTION
     Dosage: 100MG PER DAY
     Dates: start: 20100525
  9. VITAMIN D [Concomitant]
     Route: 048
     Dates: start: 20100126
  10. PRILOSEC [Concomitant]
     Route: 048
     Dates: start: 20100831
  11. CALCIUM [Concomitant]
     Indication: OSTEOPENIA
     Route: 048
     Dates: start: 20100831
  12. LISINOPRIL AND HYDROCHLOROTHIAZIDE [Concomitant]
     Route: 048
     Dates: start: 20110802

REACTIONS (3)
  - ABDOMINAL SEPSIS [None]
  - URINARY TRACT INFECTION [None]
  - HYPOXIA [None]
